FAERS Safety Report 4600031-2 (Version None)
Quarter: 2005Q1

REPORT INFORMATION
  Report Type: 
  Country: None (occurrence: None)
  Receive Date: 20050303
  Receipt Date: 20050216
  Transmission Date: 20050727
  Serious: Yes (Other)
  Sender: FDA-Public Use
  Company Number: USA050187268

PATIENT
  Age: 40 Year
  Sex: Female
  Weight: 94 kg

DRUGS (6)
  1. CYMBALTA [Suspect]
     Dosage: 60 MG DAY
     Dates: start: 20040913, end: 20041227
  2. PERCOCET [Concomitant]
  3. NEURONTIN [Concomitant]
  4. FLEXERIL [Concomitant]
  5. LIDODERM (LIDOCAINE) [Concomitant]
  6. ZOLOFT [Concomitant]

REACTIONS (1)
  - CONVULSION [None]
